FAERS Safety Report 15413862 (Version 8)
Quarter: 2020Q3

REPORT INFORMATION
  Report Type: Report from Study
  Country: JP (occurrence: JP)
  Receive Date: 20180921
  Receipt Date: 20200727
  Transmission Date: 20201102
  Serious: Yes (Death, Life-Threatening, Hospitalization)
  Sender: FDA-Public Use
  Company Number: PHJP2018JP007419

PATIENT
  Age: 54 Year
  Sex: Male
  Weight: 56.5 kg

DRUGS (17)
  1. ILARIS [Suspect]
     Active Substance: CANAKINUMAB
     Indication: FAMILIAL MEDITERRANEAN FEVER
     Dosage: 150 MG, UNK
     Route: 058
     Dates: start: 20171222
  2. ILARIS [Suspect]
     Active Substance: CANAKINUMAB
     Dosage: 150 MG, UNK
     Route: 058
     Dates: start: 20180105
  3. ILARIS [Suspect]
     Active Substance: CANAKINUMAB
     Dosage: 300 MG, UNK
     Route: 058
     Dates: start: 20180511
  4. PREDNISOLONE. [Concomitant]
     Active Substance: PREDNISOLONE
     Indication: PRODUCT USED FOR UNKNOWN INDICATION
     Dosage: UNK
     Route: 048
  5. ILARIS [Suspect]
     Active Substance: CANAKINUMAB
     Dosage: 150 MG, UNK
     Route: 058
     Dates: start: 20180803
  6. ILARIS [Suspect]
     Active Substance: CANAKINUMAB
     Dosage: 300 MG, UNK
     Route: 058
     Dates: start: 20180119
  7. ILARIS [Suspect]
     Active Substance: CANAKINUMAB
     Dosage: 150 MG, UNK
     Route: 058
     Dates: start: 20180906, end: 20180907
  8. ILARIS [Suspect]
     Active Substance: CANAKINUMAB
     Dosage: 300 MG, UNK
     Route: 058
     Dates: start: 20180607
  9. COLCHICINE. [Concomitant]
     Active Substance: COLCHICINE
     Dosage: 1 MG, UNK
     Route: 048
     Dates: start: 20170928, end: 20171002
  10. COLCHICINE. [Concomitant]
     Active Substance: COLCHICINE
     Dosage: 1.5 MG, UNK
     Route: 048
     Dates: start: 20171003, end: 20171009
  11. ILARIS [Suspect]
     Active Substance: CANAKINUMAB
     Dosage: 300 MG, UNK
     Route: 058
     Dates: start: 20180216
  12. ILARIS [Suspect]
     Active Substance: CANAKINUMAB
     Dosage: 300 MG, UNK
     Route: 058
     Dates: start: 20180413
  13. COLCHICINE. [Concomitant]
     Active Substance: COLCHICINE
     Indication: FAMILIAL MEDITERRANEAN FEVER
     Dosage: 0.5 MG, UNK
     Route: 048
     Dates: start: 20170917, end: 20170927
  14. COLCHICINE. [Concomitant]
     Active Substance: COLCHICINE
     Dosage: 2 MG, QD
     Route: 048
     Dates: start: 20171010, end: 20180904
  15. ILARIS [Suspect]
     Active Substance: CANAKINUMAB
     Dosage: 300 MG, UNK
     Route: 058
     Dates: start: 20180316
  16. ILARIS [Suspect]
     Active Substance: CANAKINUMAB
     Dosage: 300 MG, UNK
     Route: 058
     Dates: start: 20180706
  17. DECADRON [Suspect]
     Active Substance: DEXAMETHASONE
     Indication: PRODUCT USED FOR UNKNOWN INDICATION
     Dosage: UNK
     Route: 048

REACTIONS (29)
  - Familial mediterranean fever [Fatal]
  - Rash [Fatal]
  - Anaemia [Fatal]
  - Pneumonia [Fatal]
  - Pyrexia [Fatal]
  - White blood cell count decreased [Recovered/Resolved]
  - Monocyte count increased [Not Recovered/Not Resolved]
  - Blood lactate dehydrogenase increased [Fatal]
  - Neutrophil count decreased [Recovered/Resolved]
  - White blood cell count decreased [Fatal]
  - Haemorrhage [Fatal]
  - Pseudomonas infection [Fatal]
  - Pulmonary oedema [Fatal]
  - Sepsis [Fatal]
  - Blood fibrinogen increased [Fatal]
  - Neutrophil count decreased [Fatal]
  - Coma [Fatal]
  - Disease progression [Fatal]
  - Shock [Fatal]
  - White blood cell count decreased [Recovered/Resolved]
  - Arthralgia [Recovered/Resolved]
  - Neutrophil count decreased [Recovered/Resolved]
  - Chest pain [Fatal]
  - Blood creatinine increased [Fatal]
  - Haemophagocytic lymphohistiocytosis [Fatal]
  - Platelet count decreased [Fatal]
  - Disseminated intravascular coagulation [Fatal]
  - Arthralgia [Fatal]
  - Acute kidney injury [Fatal]

NARRATIVE: CASE EVENT DATE: 20180105
